APPROVED DRUG PRODUCT: METAPROTERENOL SULFATE
Active Ingredient: METAPROTERENOL SULFATE
Strength: 0.4%
Dosage Form/Route: SOLUTION;INHALATION
Application: A071855 | Product #001
Applicant: NEPHRON PHARMACEUTICALS CORP
Approved: Jul 14, 1988 | RLD: No | RS: No | Type: DISCN